FAERS Safety Report 5434291-5 (Version None)
Quarter: 2007Q3

REPORT INFORMATION
  Report Type: 
  Country: None (occurrence: None)
  Receive Date: 20070831
  Receipt Date: 20070827
  Transmission Date: 20080115
  Serious: Yes (Life-Threatening)
  Sender: FDA-Public Use
  Company Number: JP-BRISTOL-MYERS SQUIBB COMPANY-13891965

PATIENT
  Age: 49 Year
  Sex: Male

DRUGS (11)
  1. REYATAZ [Suspect]
     Indication: HIV INFECTION
     Route: 048
     Dates: start: 20070224, end: 20070319
  2. COMBIVIR [Suspect]
     Indication: HIV INFECTION
     Route: 048
     Dates: start: 20061114, end: 20061211
  3. KALETRA [Suspect]
     Indication: HIV INFECTION
     Route: 048
     Dates: start: 20061114, end: 20070223
  4. EPZICOM [Suspect]
     Indication: HIV INFECTION
     Route: 048
     Dates: start: 20061212, end: 20070319
  5. FOSCAVIR [Suspect]
     Dosage: DOSE CHANGED TO 35MG/KG FROM 9DEC06-30DEC06 AND 20JAN07-01FEB07
     Route: 041
     Dates: start: 20061123, end: 20061208
  6. VALIXA [Suspect]
     Dosage: DOSE CHANGED TO 450 MG FROM 9DEC06-UNKNOWN
     Route: 048
     Dates: start: 20061123, end: 20061208
  7. ZITHROMAC [Concomitant]
     Route: 048
     Dates: start: 20061106
  8. BAKTAR [Concomitant]
     Route: 048
     Dates: start: 20061106, end: 20061122
  9. ROCEPHIN [Concomitant]
     Dosage: 1000MG/1/1DAY FROM 25OCT06-31OCT06; 2000MG/1/DAY FROM 08NOV2006-23NOV06
     Route: 042
     Dates: start: 20061025, end: 20061123
  10. FAMOTIDINE [Concomitant]
     Route: 048
     Dates: start: 20061116, end: 20070306
  11. FUNGIZONE [Concomitant]
     Route: 048

REACTIONS (1)
  - PANCYTOPENIA [None]
